FAERS Safety Report 10472283 (Version 1)
Quarter: 2014Q3

REPORT INFORMATION
  Report Type: Spontaneous
  Country: US (occurrence: None)
  Receive Date: 20140923
  Receipt Date: 20140923
  Transmission Date: 20150326
  Serious: Yes (Hospitalization)
  Sender: FDA-Public Use
  Company Number: None

PATIENT
  Age: 73 Year
  Sex: Female

DRUGS (3)
  1. MEDROL [Suspect]
     Active Substance: METHYLPREDNISOLONE
     Indication: NERVE COMPRESSION
     Dosage: AS DIRECTED
  2. OMEPRAZOLE. [Concomitant]
     Active Substance: OMEPRAZOLE
  3. ELMIRON [Concomitant]
     Active Substance: PENTOSAN POLYSULFATE SODIUM

REACTIONS (6)
  - Renal failure [None]
  - Dehydration [None]
  - Electrolyte imbalance [None]
  - Atrial fibrillation [None]
  - Haematochezia [None]
  - Diarrhoea [None]

NARRATIVE: CASE EVENT DATE: 20140711
